FAERS Safety Report 10188012 (Version 1)
Quarter: 2014Q2

REPORT INFORMATION
  Report Type: Spontaneous
  Country: US (occurrence: US)
  Receive Date: 20140522
  Receipt Date: 20140522
  Transmission Date: 20141212
  Serious: No
  Sender: FDA-Public Use
  Company Number: US-SA-2013SA097161

PATIENT
  Age: 27 Year
  Sex: Male

DRUGS (2)
  1. LANTUS [Suspect]
     Dosage: TAKEN FROM: 3 MONTHS AGO. DOSE:8 UNIT(S)
     Route: 051
  2. SOLOSTAR [Concomitant]

REACTIONS (2)
  - Anxiety [Unknown]
  - Blood glucose increased [Unknown]
